FAERS Safety Report 20001300 (Version 1)
Quarter: 2021Q4

REPORT INFORMATION
  Report Type: Spontaneous
  Country: US (occurrence: US)
  Receive Date: 20211027
  Receipt Date: 20211027
  Transmission Date: 20220303
  Serious: Yes (Other)
  Sender: FDA-Public Use
  Company Number: None

PATIENT
  Age: 62 Year
  Sex: Female
  Weight: 96.75 kg

DRUGS (1)
  1. HIZENTRA [Suspect]
     Active Substance: HUMAN IMMUNOGLOBULIN G
     Indication: Blood immunoglobulin G decreased
     Dosage: ?          OTHER FREQUENCY:QOW;
     Route: 058

REACTIONS (5)
  - Infusion site reaction [None]
  - Infusion site swelling [None]
  - Infusion site pruritus [None]
  - Infusion site erythema [None]
  - Infusion site rash [None]

NARRATIVE: CASE EVENT DATE: 20211020
